FAERS Safety Report 5893110-3 (Version None)
Quarter: 2008Q3

REPORT INFORMATION
  Report Type: 
  Country: None (occurrence: None)
  Receive Date: 20080922
  Receipt Date: 20080922
  Transmission Date: 20090109
  Serious: Yes (Hospitalization)
  Sender: FDA-Public Use
  Company Number: None

PATIENT
  Age: 45 Year
  Sex: Female
  Weight: 70.3075 kg

DRUGS (2)
  1. ULTRAM [Suspect]
     Indication: DRUG DEPENDENCE
     Dosage: 400MG / 1500MG DAILY PO SOME ABSTAINANCE
     Route: 048
     Dates: start: 19950101, end: 20080919
  2. ULTRAM [Suspect]
     Indication: PAIN
     Dosage: 400MG / 1500MG DAILY PO SOME ABSTAINANCE
     Route: 048
     Dates: start: 19950101, end: 20080919

REACTIONS (2)
  - DRUG DEPENDENCE [None]
  - WITHDRAWAL SYNDROME [None]
